FAERS Safety Report 17677664 (Version 6)
Quarter: 2021Q2

REPORT INFORMATION
  Report Type: Report from Study
  Country: DE (occurrence: DE)
  Receive Date: 20200416
  Receipt Date: 20210524
  Transmission Date: 20210716
  Serious: Yes (Other)
  Sender: FDA-Public Use
  Company Number: NVSC2020DE102450

PATIENT
  Sex: Female
  Weight: 85 kg

DRUGS (7)
  1. KISQALI [Suspect]
     Active Substance: RIBOCICLIB
     Dosage: 400 MG, QD (SCHEMA 21 DAYS, 7 DAYS INTAKE)
     Route: 048
     Dates: start: 20200316, end: 20200503
  2. LETROZOLE. [Suspect]
     Active Substance: LETROZOLE
     Indication: BREAST CANCER METASTATIC
     Dosage: 2.5 MG, QD
     Route: 048
     Dates: start: 20200113
  3. KISQALI [Suspect]
     Active Substance: RIBOCICLIB
     Indication: BREAST CANCER METASTATIC
     Dosage: 600 MG, QD  (SCHEMA 21 DAYS, 7 DAYS INTAKE)
     Route: 048
     Dates: start: 20200113, end: 20200315
  4. KISQALI [Suspect]
     Active Substance: RIBOCICLIB
     Dosage: UNK
     Route: 048
     Dates: start: 20200405
  5. KISQALI [Suspect]
     Active Substance: RIBOCICLIB
     Dosage: 200 MG, QD (SCHEMA 21 DAYS, 7 DAYS INTAKE)
     Route: 048
     Dates: start: 20200511, end: 20200615
  6. KISQALI [Suspect]
     Active Substance: RIBOCICLIB
     Dosage: 200 MG (SCHEME 14 DAYS INTAKE 7 DAYS PAUSE)
     Route: 048
     Dates: start: 20200616
  7. KISQALI [Suspect]
     Active Substance: RIBOCICLIB
     Dosage: 400 MG, QD (SCHEMA 21 DAYS, 7 DAYS INTAKE)
     Route: 048
     Dates: start: 20200406, end: 20200426

REACTIONS (5)
  - Palmar-plantar erythrodysaesthesia syndrome [Recovered/Resolved]
  - Erysipelas [Recovered/Resolved]
  - Lacrimation increased [Recovered/Resolved]
  - Erythema [Recovered/Resolved]
  - Pruritus [Recovered/Resolved]

NARRATIVE: CASE EVENT DATE: 20200406
